FAERS Safety Report 6508875-7 (Version None)
Quarter: 2009Q4

REPORT INFORMATION
  Report Type: 
  Country: None (occurrence: None)
  Receive Date: 20091221
  Receipt Date: 20090817
  Transmission Date: 20100525
  Serious: No
  Sender: FDA-Public Use
  Company Number: US-ASTRAZENECA-2009SE08493

PATIENT
  Age: 22940 Day
  Sex: Female
  Weight: 65.8 kg

DRUGS (6)
  1. CRESTOR [Suspect]
     Route: 048
     Dates: start: 20050301
  2. CRESTOR [Suspect]
     Route: 048
  3. CRESTOR [Suspect]
     Route: 048
     Dates: start: 20050401
  4. CARDIZEM [Concomitant]
     Indication: CARDIAC DISORDER
  5. ASPIRIN [Concomitant]
     Indication: CARDIAC DISORDER
  6. GLUCOPHAGE [Concomitant]
     Indication: DIABETES MELLITUS

REACTIONS (1)
  - PAIN [None]
